FAERS Safety Report 13156059 (Version 1)
Quarter: 2017Q1

REPORT INFORMATION
  Report Type: Spontaneous
  Country: US (occurrence: US)
  Receive Date: 20170126
  Receipt Date: 20170126
  Transmission Date: 20170428
  Serious: No
  Sender: FDA-Public Use
  Company Number: US-ROCHE-1073231

PATIENT
  Sex: Female

DRUGS (2)
  1. VALIUM [Suspect]
     Active Substance: DIAZEPAM
     Indication: SEIZURE
     Route: 048
  2. VALIUM [Suspect]
     Active Substance: DIAZEPAM
     Indication: POST-TRAUMATIC STRESS DISORDER

REACTIONS (2)
  - Seizure [Unknown]
  - Post-traumatic stress disorder [Unknown]
